FAERS Safety Report 4454205-4 (Version None)
Quarter: 2004Q3

REPORT INFORMATION
  Report Type: 
  Country: None (occurrence: None)
  Receive Date: 20040826
  Receipt Date: 20040722
  Transmission Date: 20050211
  Serious: No
  Sender: FDA-Public Use
  Company Number: WAES 0407USA01914

PATIENT
  Age: 48 Year
  Sex: Female

DRUGS (16)
  1. ZETIA [Suspect]
     Indication: HYPERLIPIDAEMIA
     Dosage: 10 MG/DAILY/PO
     Route: 048
  2. ACIPHEX [Concomitant]
  3. ARTHROTEC [Concomitant]
  4. DEMADEX [Concomitant]
  5. GLUCOVANCE [Concomitant]
  6. IMDUR [Concomitant]
  7. INDOCIN [Concomitant]
  8. LIPITOR [Concomitant]
  9. PREMPRO [Concomitant]
  10. PROCARDIA XL [Concomitant]
  11. SKELAXIN [Concomitant]
  12. SYNTHROID [Concomitant]
  13. ZANAFLEX [Concomitant]
  14. ZESTRIL [Concomitant]
  15. NITROGLYCERIN [Concomitant]
  16. NITRO-DUR [Concomitant]

REACTIONS (3)
  - CHEST DISCOMFORT [None]
  - FEELING HOT [None]
  - PARAESTHESIA [None]
